FAERS Safety Report 22323281 (Version 1)
Quarter: 2023Q2

REPORT INFORMATION
  Report Type: Spontaneous
  Country: BE (occurrence: BE)
  Receive Date: 20230516
  Receipt Date: 20230516
  Transmission Date: 20230722
  Serious: Yes (Hospitalization)
  Sender: FDA-Public Use
  Company Number: BE-BIOGEN-2023BI01205203

PATIENT

DRUGS (1)
  1. SPINRAZA [Suspect]
     Active Substance: NUSINERSEN
     Indication: Product used for unknown indication
     Route: 050
     Dates: start: 201809

REACTIONS (1)
  - Spinal cord abscess [Recovered/Resolved]

NARRATIVE: CASE EVENT DATE: 20180101
